FAERS Safety Report 4548746-9 (Version None)
Quarter: 2005Q1

REPORT INFORMATION
  Report Type: 
  Country: None (occurrence: None)
  Receive Date: 20050107
  Receipt Date: 20050107
  Transmission Date: 20050727
  Serious: Yes (Death)
  Sender: FDA-Public Use
  Company Number: None

PATIENT
  Age: 80 Year
  Sex: Female
  Weight: 76.2 kg

DRUGS (15)
  1. REMICADE [Suspect]
     Indication: PSORIATIC ARTHROPATHY
     Dates: start: 20040404, end: 20041207
  2. METHOTREXATE [Suspect]
     Indication: PSORIATIC ARTHROPATHY
     Dosage: 0.8CC QWEEK
     Dates: start: 20040604, end: 20041207
  3. TUMS [Concomitant]
  4. LODINE [Concomitant]
  5. LEVOXYL [Concomitant]
  6. AMITRIPTYLINE HCL [Concomitant]
  7. METHYLPREDNISOLONE [Concomitant]
  8. VITAMIN E [Concomitant]
  9. FOLIC ACID [Concomitant]
  10. MULTIVITAMIN [Concomitant]
  11. DITROPAN XL [Concomitant]
  12. HYDROCHLOROTHIAZIDE [Concomitant]
  13. COZAAR [Concomitant]
  14. ATENOLOL [Concomitant]
  15. EVISTA [Concomitant]

REACTIONS (10)
  - ABDOMINAL PAIN [None]
  - DISSEMINATED INTRAVASCULAR COAGULATION [None]
  - FEELING ABNORMAL [None]
  - HEADACHE [None]
  - HISTOPLASMOSIS DISSEMINATED [None]
  - LEUKOPENIA [None]
  - NAUSEA [None]
  - SEPSIS [None]
  - THROMBOCYTOPENIA [None]
  - VOMITING [None]
